FAERS Safety Report 20536599 (Version 1)
Quarter: 2022Q1

REPORT INFORMATION
  Report Type: Spontaneous
  Country: CZ (occurrence: CZ)
  Receive Date: 20220302
  Receipt Date: 20220302
  Transmission Date: 20220423
  Serious: Yes (Death, Other)
  Sender: FDA-Public Use
  Company Number: CZ-002147023-NVSC2021CZ218216

PATIENT
  Sex: Male

DRUGS (7)
  1. FENTANYL [Suspect]
     Active Substance: FENTANYL
     Indication: Product used for unknown indication
     Dosage: UNK
     Route: 065
  2. AIMOVIG [Suspect]
     Active Substance: ERENUMAB-AOOE
     Indication: Migraine
     Dosage: 140 MG
     Route: 065
     Dates: start: 20191024, end: 20210315
  3. SERTRALINE HYDROCHLORIDE [Suspect]
     Active Substance: SERTRALINE HYDROCHLORIDE
     Indication: Product used for unknown indication
  4. IMURAN [Concomitant]
     Active Substance: AZATHIOPRINE
     Dosage: 50 MG
  5. MELPERONE HYDROCHLORIDE [Concomitant]
     Active Substance: MELPERONE HYDROCHLORIDE
     Indication: Product used for unknown indication
  6. ASACOL [Concomitant]
     Active Substance: MESALAMINE
     Indication: Product used for unknown indication
  7. TIAPRIDE HYDROCHLORIDE [Concomitant]
     Active Substance: TIAPRIDE HYDROCHLORIDE
     Indication: Product used for unknown indication

REACTIONS (7)
  - Sudden death [Fatal]
  - Completed suicide [Fatal]
  - COVID-19 [Unknown]
  - Cardiac disorder [Unknown]
  - Inappropriate schedule of product administration [Unknown]
  - Off label use [Unknown]
  - Prescription drug used without a prescription [Unknown]

NARRATIVE: CASE EVENT DATE: 20210701
